FAERS Safety Report 6557388-5 (Version None)
Quarter: 2010Q1

REPORT INFORMATION
  Report Type: 
  Country: None (occurrence: None)
  Receive Date: 20100129
  Receipt Date: 20100118
  Transmission Date: 20100710
  Serious: Yes (Hospitalization)
  Sender: FDA-Public Use
  Company Number: PHHY2010FR02746

PATIENT
  Sex: Male

DRUGS (4)
  1. AREDIA [Suspect]
     Indication: COMPLEX REGIONAL PAIN SYNDROME
     Dosage: 60 MG, ONCE/SINGLE
     Dates: start: 20091106
  2. APROVEL [Concomitant]
  3. DAONIL N [Concomitant]
  4. METFORMIN HCL [Concomitant]

REACTIONS (1)
  - PULMONARY EMBOLISM [None]
